FAERS Safety Report 4554721-0 (Version None)
Quarter: 2004Q4

REPORT INFORMATION
  Report Type: 
  Country: None (occurrence: None)
  Receive Date: 20041227
  Receipt Date: 20041012
  Transmission Date: 20050328
  Serious: No
  Sender: FDA-Public Use
  Company Number: US095121

PATIENT
  Age: 71 Year
  Sex: Male
  Weight: 62.5 kg

DRUGS (10)
  1. SENSIPAR [Suspect]
     Indication: HYPERPARATHYROIDISM SECONDARY
     Dosage: 30 MG, 1 IN 1 DAYS
     Dates: start: 20040916, end: 20040917
  2. SEVELAMER HCL [Concomitant]
  3. PANTOPRAZOLE SODIUM [Concomitant]
  4. AMLODIPINE BESYLATE [Concomitant]
  5. IRBESARTAN [Concomitant]
  6. OBERET-FOLIC [Concomitant]
  7. PAROXETINE HYDROCHLORIDE [Concomitant]
  8. ROSIGLITAZONE MALEATE [Concomitant]
  9. SIMVASTATIN [Concomitant]
  10. COLCHINE [Concomitant]

REACTIONS (5)
  - ANXIETY [None]
  - HEADACHE [None]
  - HYPERSENSITIVITY [None]
  - PHOTOPHOBIA [None]
  - PYREXIA [None]
